FAERS Safety Report 5383262-6 (Version None)
Quarter: 2007Q3

REPORT INFORMATION
  Report Type: 
  Country: None (occurrence: None)
  Receive Date: 20070710
  Receipt Date: 20070629
  Transmission Date: 20080115
  Serious: Yes (Other)
  Sender: FDA-Public Use
  Company Number: US-PFIZER INC-2007027358

PATIENT
  Sex: Male
  Weight: 71.7 kg

DRUGS (2)
  1. MEDROL [Suspect]
     Indication: TENDONITIS
     Dates: start: 20060701, end: 20060701
  2. MULTIVITAMIN [Concomitant]

REACTIONS (4)
  - FAT TISSUE INCREASED [None]
  - FLUID RETENTION [None]
  - GYNAECOMASTIA [None]
  - SWELLING [None]
